FAERS Safety Report 19850302 (Version 1)
Quarter: 2021Q3

REPORT INFORMATION
  Report Type: Spontaneous
  Country: JP (occurrence: JP)
  Receive Date: 20210917
  Receipt Date: 20210917
  Transmission Date: 20211014
  Serious: Yes (Hospitalization)
  Sender: FDA-Public Use
  Company Number: JP-PFIZER INC-202101150404

PATIENT
  Age: 5 Decade
  Sex: Female

DRUGS (9)
  1. CETUXIMAB. [Suspect]
     Active Substance: CETUXIMAB
     Indication: COLON CANCER
     Dosage: UNK
     Route: 065
     Dates: start: 202012, end: 20210115
  2. BRAFTOVI [Suspect]
     Active Substance: ENCORAFENIB
     Dosage: UNK
     Route: 048
     Dates: start: 20210205
  3. CETUXIMAB. [Suspect]
     Active Substance: CETUXIMAB
     Dosage: UNK, Q2W
     Route: 065
     Dates: start: 20210205
  4. BRAFTOVI [Suspect]
     Active Substance: ENCORAFENIB
     Indication: COLON CANCER
     Dosage: UNK
     Route: 048
     Dates: start: 202012, end: 20210115
  5. MEKTOVI [Suspect]
     Active Substance: BINIMETINIB
     Indication: COLON CANCER
     Dosage: UNK
     Route: 048
     Dates: start: 202012, end: 20210108
  6. BRAFTOVI [Suspect]
     Active Substance: ENCORAFENIB
     Dosage: 150 MG
     Route: 048
     Dates: start: 20210702
  7. CETUXIMAB. [Suspect]
     Active Substance: CETUXIMAB
     Dosage: UNK, Q2W
     Dates: start: 20210702
  8. BRAFTOVI [Suspect]
     Active Substance: ENCORAFENIB
     Dosage: 225 MG
     Route: 048
     Dates: start: 20210219
  9. MEKTOVI [Suspect]
     Active Substance: BINIMETINIB
     Dosage: 60 MG
     Route: 048
     Dates: start: 20210618, end: 20210623

REACTIONS (4)
  - Decreased appetite [Recovering/Resolving]
  - Fatigue [Recovering/Resolving]
  - Nausea [Recovering/Resolving]
  - Paronychia [Recovering/Resolving]

NARRATIVE: CASE EVENT DATE: 20210108
